FAERS Safety Report 23820476 (Version 2)
Quarter: 2024Q2

REPORT INFORMATION
  Report Type: Spontaneous
  Country: PL (occurrence: PL)
  Receive Date: 20240506
  Receipt Date: 20240511
  Transmission Date: 20240716
  Serious: Yes (Hospitalization, Other)
  Sender: FDA-Public Use
  Company Number: PL-ROCHE-3551358

PATIENT
  Age: 18 Year
  Sex: Male

DRUGS (14)
  1. CYCLOSPORINE [Suspect]
     Active Substance: CYCLOSPORINE
     Indication: Prophylaxis against graft versus host disease
     Dosage: UNK (SINCE DAY +5)
     Route: 065
  2. MYCOPHENOLATE MOFETIL [Suspect]
     Active Substance: MYCOPHENOLATE MOFETIL
     Indication: Prophylaxis against graft versus host disease
     Dosage: UNK (SINCE DAY +1)
     Route: 065
  3. BUSULFAN [Suspect]
     Active Substance: BUSULFAN
     Indication: Immunosuppression
     Dosage: 3.2 MILLIGRAM/KILOGRAM, ONCE A DAY (DAYS -7 TO -4)
     Route: 065
  4. BUSULFAN [Suspect]
     Active Substance: BUSULFAN
     Indication: Allogenic stem cell transplantation
  5. CYCLOPHOSPHAMIDE [Suspect]
     Active Substance: CYCLOPHOSPHAMIDE
     Indication: Prophylaxis against graft versus host disease
     Dosage: 50 MILLIGRAM/KILOGRAM, ONCE A DAY (DAYS +3, +5)
     Route: 065
  6. FLUDARABINE [Suspect]
     Active Substance: FLUDARABINE PHOSPHATE
     Indication: Immunosuppression
     Dosage: 30 MILLIGRAM/SQ. METER, ONCE A DAY (DAYS -7 TO -3)
     Route: 065
  7. FLUDARABINE [Suspect]
     Active Substance: FLUDARABINE PHOSPHATE
     Indication: Allogenic stem cell transplantation
  8. METHYLPREDNISOLONE [Suspect]
     Active Substance: METHYLPREDNISOLONE
     Indication: Immunosuppression
     Dosage: 2 MILLIGRAM/KILOGRAM, ONCE A DAY
     Route: 065
  9. RITUXIMAB [Suspect]
     Active Substance: RITUXIMAB
     Indication: Antiviral prophylaxis
     Dosage: UNK
     Route: 065
  10. RITUXIMAB [Suspect]
     Active Substance: RITUXIMAB
     Indication: Post transplant lymphoproliferative disorder
  11. SIROLIMUS [Suspect]
     Active Substance: SIROLIMUS
     Indication: Immunosuppression
     Dosage: UNK (WITH LEVEL RANGE 4-6 NG/ML)
     Route: 065
  12. THIOTEPA [Suspect]
     Active Substance: THIOTEPA
     Indication: Immunosuppression
     Dosage: 10 MILLIGRAM/KILOGRAM, ONCE A DAY (DAY -2)
     Route: 065
  13. THIOTEPA [Suspect]
     Active Substance: THIOTEPA
     Indication: Allogenic stem cell transplantation
  14. FILGRASTIM [Concomitant]
     Active Substance: FILGRASTIM
     Indication: Product used for unknown indication
     Dosage: UNK
     Route: 065

REACTIONS (15)
  - Enterococcal infection [Unknown]
  - Sepsis [Unknown]
  - Graft versus host disease [Recovered/Resolved]
  - Urinary tract infection [Recovered/Resolved]
  - Pneumonia klebsiella [Unknown]
  - Gastrointestinal inflammation [Unknown]
  - Klebsiella urinary tract infection [Unknown]
  - Klebsiella sepsis [Recovered/Resolved]
  - Epididymitis [Unknown]
  - Klebsiella infection [Not Recovered/Not Resolved]
  - Acute graft versus host disease in skin [Recovered/Resolved]
  - Bacterial infection [Unknown]
  - Acute graft versus host disease in intestine [Recovered/Resolved]
  - Gastrointestinal bacterial infection [Not Recovered/Not Resolved]
  - Pyrexia [Unknown]
